FAERS Safety Report 8175254-9 (Version None)
Quarter: 2012Q1

REPORT INFORMATION
  Report Type: 
  Country: None (occurrence: None)
  Receive Date: 20120229
  Receipt Date: 20120227
  Transmission Date: 20120608
  Serious: Yes (Death)
  Sender: FDA-Public Use
  Company Number: US-PFIZER INC-2011288935

PATIENT
  Sex: Male
  Weight: 63.5 kg

DRUGS (13)
  1. SPIRONOLACTONE [Concomitant]
     Dosage: 25 MG, 2X/DAY
  2. NITROSTAT [Suspect]
     Indication: CHEST PAIN
     Dosage: 0.4 MG, ^EVERY 5 MINS X 3 TABS AS NEEDED FOR
     Route: 060
  3. PROCHLORPERAZINE [Concomitant]
     Indication: NAUSEA
     Dosage: 5 MG, ^EVERY 4 TO 6 HOURS AS NEEDED^
  4. GLIPIZIDE [Concomitant]
     Dosage: 10 MG, 1X/DAY
  5. PROCHLORPERAZINE [Concomitant]
     Indication: VOMITING
  6. HYDROCODONE [Concomitant]
     Indication: FLATULENCE
     Dosage: 5/325 EVERY 4 HOURS AS NEEDED TAKE ONE OR TWO  PO Q 4 H PRN
  7. MORPHINE [Concomitant]
     Dosage: UNK
  8. NITROSTAT [Suspect]
     Indication: DYSPNOEA
  9. LORAZEPAM [Concomitant]
     Dosage: 0.5 MG, ^EVERY 4 HOURS AS NEEDED^
  10. SIMETHICONE [Suspect]
     Dosage: 80 MG, ^CHEW AND SWALLOW^
  11. NIFEDIPINE [Concomitant]
     Dosage: 60 MG, 1X/DAY
  12. FUROSEMIDE [Concomitant]
     Dosage: 80 MG, 1X/DAY
  13. OMEPRAZOLE [Concomitant]
     Dosage: 20 MG, 1X/DAY

REACTIONS (1)
  - DEATH [None]
